FAERS Safety Report 14028449 (Version 1)
Quarter: 2017Q3

REPORT INFORMATION
  Report Type: Not Available
  Country: US (occurrence: US)
  Receive Date: 20170930
  Receipt Date: 20170930
  Transmission Date: 20171128
  Serious: No
  Sender: FDA-Public Use
  Company Number: US-NEUROCRINE BIOSCIENCES INC.-2017NBI00718

PATIENT
  Age: 52 Year
  Sex: Female
  Weight: 71.28 kg

DRUGS (5)
  1. INGREZZA [Suspect]
     Active Substance: VALBENAZINE
     Indication: TARDIVE DYSKINESIA
     Route: 048
     Dates: start: 20170728, end: 20170803
  2. SEROQUEL [Concomitant]
     Active Substance: QUETIAPINE FUMARATE
  3. XANAX [Concomitant]
     Active Substance: ALPRAZOLAM
     Dosage: AT NIGHT
  4. INGREZZA [Suspect]
     Active Substance: VALBENAZINE
     Route: 048
     Dates: start: 20170804
  5. LATUDA [Concomitant]
     Active Substance: LURASIDONE HYDROCHLORIDE

REACTIONS (4)
  - Dysphemia [Not Recovered/Not Resolved]
  - Paraesthesia oral [Not Recovered/Not Resolved]
  - Dizziness [Not Recovered/Not Resolved]
  - Tremor [Not Recovered/Not Resolved]

NARRATIVE: CASE EVENT DATE: 201708
